FAERS Safety Report 25993072 (Version 1)
Quarter: 2025Q4

REPORT INFORMATION
  Report Type: Report from Study
  Country: CN (occurrence: CN)
  Receive Date: 20251103
  Receipt Date: 20251103
  Transmission Date: 20260117
  Serious: Yes (Other)
  Sender: NOVARTIS
  Company Number: CN-002147023-NVSC2025CN168737

PATIENT
  Sex: Male

DRUGS (1)
  1. LEQVIO [Suspect]
     Active Substance: INCLISIRAN SODIUM
     Indication: Hyperlipidaemia
     Dosage: 1 DOSAGE FORM
     Route: 058
     Dates: start: 20250925, end: 20250925

REACTIONS (7)
  - Liver injury [Unknown]
  - Drug effect less than expected [Unknown]
  - Alanine aminotransferase increased [Unknown]
  - Blood cholesterol decreased [Unknown]
  - Blood glucose increased [Unknown]
  - Low density lipoprotein decreased [Unknown]
  - Apolipoprotein B decreased [Unknown]

NARRATIVE: CASE EVENT DATE: 20250101
